FAERS Safety Report 14284498 (Version 1)
Quarter: 2017Q4

REPORT INFORMATION
  Report Type: Spontaneous
  Country: US (occurrence: US)
  Receive Date: 20171214
  Receipt Date: 20171214
  Transmission Date: 20180321
  Serious: Yes (Hospitalization, Other)
  Sender: FDA-Public Use
  Company Number: US-SHILPA MEDICARE LIMITED-2037154

PATIENT
  Age: 58 Year
  Sex: Female

DRUGS (1)
  1. AZACITIDINE. [Suspect]
     Active Substance: AZACITIDINE
     Indication: MYELODYSPLASTIC SYNDROME

REACTIONS (5)
  - Hypoxia [Recovered/Resolved]
  - Malaise [Unknown]
  - Chills [Unknown]
  - Pyrexia [Unknown]
  - Organising pneumonia [Unknown]
